FAERS Safety Report 13776060 (Version 1)
Quarter: 2017Q3

REPORT INFORMATION
  Report Type: Report from Study
  Country: US (occurrence: US)
  Receive Date: 20170720
  Receipt Date: 20170720
  Transmission Date: 20171127
  Serious: Yes (Hospitalization, Other)
  Sender: FDA-Public Use
  Company Number: US-GILEAD-2017-0283970

PATIENT
  Sex: Male

DRUGS (2)
  1. LEDIPASVIR/SOFOSBUVIR [Suspect]
     Active Substance: LEDIPASVIR\SOFOSBUVIR
     Indication: CHRONIC HEPATITIS C
     Dosage: 1 DF, QD
     Route: 048
     Dates: start: 201502, end: 20150401
  2. LEDIPASVIR/SOFOSBUVIR [Suspect]
     Active Substance: LEDIPASVIR\SOFOSBUVIR
     Dosage: 1 DF, QD
     Route: 048
     Dates: start: 20141202, end: 20141226

REACTIONS (5)
  - Hepatitis C virus test positive [Unknown]
  - Drug dose omission [Recovered/Resolved]
  - Drug ineffective [Unknown]
  - Cerebrovascular accident [Recovered/Resolved with Sequelae]
  - Hepatitis C [Unknown]

NARRATIVE: CASE EVENT DATE: 20141226
